FAERS Safety Report 4876769-9 (Version None)
Quarter: 2006Q1

REPORT INFORMATION
  Report Type: 
  Country: None (occurrence: None)
  Receive Date: 20060110
  Receipt Date: 20051213
  Transmission Date: 20060701
  Serious: Yes (Hospitalization)
  Sender: FDA-Public Use
  Company Number: US-MERCK-0512USA02138

PATIENT
  Age: 69 Year
  Sex: Male
  Weight: 73 kg

DRUGS (4)
  1. VIOXX [Suspect]
     Indication: ARTHRITIS
     Route: 048
     Dates: start: 20010501, end: 20020111
  2. ATENOLOL [Concomitant]
     Route: 065
  3. LIPITOR [Concomitant]
     Route: 065
  4. PRINIVIL [Concomitant]
     Route: 048

REACTIONS (3)
  - DYSPNOEA [None]
  - HIP ARTHROPLASTY [None]
  - VENTRICULAR TACHYCARDIA [None]
